FAERS Safety Report 10553360 (Version 3)
Quarter: 2015Q3

REPORT INFORMATION
  Report Type: Report from Study
  Country: US (occurrence: US)
  Receive Date: 20141030
  Receipt Date: 20150904
  Transmission Date: 20151125
  Serious: Yes (Hospitalization)
  Sender: FDA-Public Use
  Company Number: US-BIOGENIDEC-2014BI109712

PATIENT
  Age: 53 Year
  Sex: Female

DRUGS (7)
  1. DICYCLOMINE [Concomitant]
     Active Substance: DICYCLOMINE HYDROCHLORIDE
  2. PANTOPRAZOLE [Concomitant]
     Active Substance: PANTOPRAZOLE SODIUM
  3. TRAMADOL. [Concomitant]
     Active Substance: TRAMADOL
  4. HYDROCODONE [Concomitant]
     Active Substance: HYDROCODONE
  5. TECFIDERA [Suspect]
     Active Substance: DIMETHYL FUMARATE
     Indication: MULTIPLE SCLEROSIS
  6. BUTALB-ACETAMIN-CAFF [Concomitant]
  7. GABAPENTIN. [Concomitant]
     Active Substance: GABAPENTIN

REACTIONS (15)
  - Hallucination [Unknown]
  - Middle insomnia [Unknown]
  - Chest discomfort [Unknown]
  - Fear [Unknown]
  - Hypertension [Unknown]
  - Emotional distress [Recovered/Resolved]
  - Crying [Recovered/Resolved]
  - Drug intolerance [Unknown]
  - Multiple sclerosis relapse [Recovered/Resolved]
  - Gastritis [Unknown]
  - Depression [Unknown]
  - Balance disorder [Unknown]
  - Weight decreased [Unknown]
  - Headache [Unknown]
  - Lethargy [Unknown]

NARRATIVE: CASE EVENT DATE: 20141014
